APPROVED DRUG PRODUCT: CEPHALEXIN
Active Ingredient: CEPHALEXIN
Strength: EQ 250MG BASE
Dosage Form/Route: TABLET;ORAL
Application: A218947 | Product #001 | TE Code: AB
Applicant: ALKEM LABORATORIES LTD
Approved: Sep 27, 2024 | RLD: No | RS: No | Type: RX